FAERS Safety Report 15276470 (Version 1)
Quarter: 2018Q3

REPORT INFORMATION
  Report Type: Spontaneous
  Country: US (occurrence: US)
  Receive Date: 20180729
  Receipt Date: 20180729
  Transmission Date: 20181010
  Serious: Yes (Life-Threatening, Hospitalization, Other)
  Sender: FDA-Public Use
  Company Number: None

PATIENT
  Age: 7 Year
  Sex: Male
  Weight: 21.6 kg

DRUGS (2)
  1. POLYETHYLENE GLYCOL 3350 NF [Suspect]
     Active Substance: POLYETHYLENE GLYCOL 3350
     Indication: CONSTIPATION
     Dosage: ?          QUANTITY:1 CAPFUL;?
     Route: 048
     Dates: start: 20151030, end: 20180707
  2. FLINTSTONES CHILDREN^S MULTI?VITAMIN [Concomitant]

REACTIONS (4)
  - Anger [None]
  - Headache [None]
  - Aggression [None]
  - Unresponsive to stimuli [None]

NARRATIVE: CASE EVENT DATE: 20180530
